FAERS Safety Report 8527060 (Version 3)
Quarter: 2013Q2

REPORT INFORMATION
  Report Type: Spontaneous
  Country: US (occurrence: US)
  Receive Date: 20120424
  Receipt Date: 20130620
  Transmission Date: 20140414
  Serious: No
  Sender: FDA-Public Use
  Company Number: US-PFIZER INC-2012096850

PATIENT
  Age: 55 Year
  Sex: 0

DRUGS (2)
  1. ANSAID [Suspect]
     Dosage: UNK
  2. ANAPROX [Suspect]
     Dosage: UNK

REACTIONS (3)
  - Drug hypersensitivity [Unknown]
  - Skin lesion [Unknown]
  - Rash [Unknown]
